FAERS Safety Report 11121721 (Version 1)
Quarter: 2015Q2

REPORT INFORMATION
  Report Type: Report from Study
  Country: VE (occurrence: VE)
  Receive Date: 20150519
  Receipt Date: 20150519
  Transmission Date: 20150821
  Serious: Yes (Hospitalization, Other)
  Sender: FDA-Public Use
  Company Number: PHHY2015VE055346

PATIENT
  Sex: Female

DRUGS (5)
  1. VITAMIIN C [Concomitant]
     Active Substance: ASCORBIC ACID
     Indication: ANTIVIRAL PROPHYLAXIS
     Dosage: 500 U, QD
     Route: 065
  2. ACLASTA [Suspect]
     Active Substance: ZOLEDRONIC ACID
     Indication: OSTEOPENIA
     Dosage: 5 MG, ANNUALLY
     Route: 042
     Dates: start: 201106
  3. HYZAAR [Concomitant]
     Active Substance: HYDROCHLOROTHIAZIDE\LOSARTAN POTASSIUM
     Indication: BLOOD PRESSURE ABNORMAL
     Dosage: 1 DF (50/12.5 MG), QID
     Route: 065
  4. FLEXURAT [Concomitant]
     Indication: PROPHYLAXIS
     Dosage: UNK UNK, QD
     Route: 065
     Dates: start: 2003
  5. CITRACAL-D [Concomitant]
     Indication: PROPHYLAXIS
     Dosage: UNK, QD
     Route: 065

REACTIONS (7)
  - Blood calcium increased [Recovering/Resolving]
  - Bone pain [Recovered/Resolved]
  - Dizziness [Recovering/Resolving]
  - Coronary artery occlusion [Recovering/Resolving]
  - Malaise [Recovering/Resolving]
  - Abasia [Recovering/Resolving]
  - Gait disturbance [Recovering/Resolving]

NARRATIVE: CASE EVENT DATE: 2011
